FAERS Safety Report 15836108 (Version 1)
Quarter: 2019Q1

REPORT INFORMATION
  Report Type: Spontaneous
  Country: US (occurrence: US)
  Receive Date: 20190117
  Receipt Date: 20190117
  Transmission Date: 20190417
  Serious: No
  Sender: FDA-Public Use
  Company Number: US-GLENMARK PHARMACEUTICALS-2018GMK038392

PATIENT

DRUGS (2)
  1. MUPIROCIN. [Suspect]
     Active Substance: MUPIROCIN
     Indication: POSTOPERATIVE CARE
  2. MUPIROCIN. [Suspect]
     Active Substance: MUPIROCIN
     Indication: WOUND TREATMENT
     Dosage: UNK
     Route: 061

REACTIONS (2)
  - Drug effective for unapproved indication [Unknown]
  - Product prescribing error [Unknown]
